FAERS Safety Report 8496626-9 (Version None)
Quarter: 2012Q3

REPORT INFORMATION
  Report Type: 
  Country: None (occurrence: None)
  Receive Date: 20120709
  Receipt Date: 20120702
  Transmission Date: 20120928
  Serious: Yes (Hospitalization)
  Sender: FDA-Public Use
  Company Number: DK-B.I. PHARMACEUTICALS,INC./RIDGEFIELD-2012-SW-00540DB

PATIENT
  Sex: Female

DRUGS (4)
  1. DIGOXIN [Concomitant]
     Indication: ATRIAL FIBRILLATION
     Dates: start: 20110718
  2. METOPROLOL [Concomitant]
     Indication: HYPERTENSION
  3. AMLODIPINE [Concomitant]
     Indication: HYPERTENSION
  4. PRADAXA [Suspect]
     Indication: ATRIAL FIBRILLATION
     Dosage: 220 RT
     Dates: start: 20120601, end: 20120623

REACTIONS (4)
  - CONFUSIONAL STATE [None]
  - VERTIGO [None]
  - DIZZINESS [None]
  - HYPONATRAEMIA [None]
